FAERS Safety Report 18341522 (Version 1)
Quarter: 2020Q4

REPORT INFORMATION
  Report Type: Spontaneous
  Country: FR (occurrence: FR)
  Receive Date: 20201004
  Receipt Date: 20201004
  Transmission Date: 20210113
  Serious: Yes (Hospitalization)
  Sender: FDA-Public Use
  Company Number: FR-TEVA-2020-FR-1833964

PATIENT
  Age: 25 Year
  Sex: Male
  Weight: 91 kg

DRUGS (1)
  1. DOXYCYCLINE. [Suspect]
     Active Substance: DOXYCYCLINE
     Indication: ACNE
     Route: 048
     Dates: start: 202007, end: 20200803

REACTIONS (1)
  - Priapism [Unknown]

NARRATIVE: CASE EVENT DATE: 20200715
